FAERS Safety Report 18585486 (Version 2)
Quarter: 2021Q1

REPORT INFORMATION
  Report Type: Spontaneous
  Country: US (occurrence: US)
  Receive Date: 20201207
  Receipt Date: 20210118
  Transmission Date: 20210419
  Serious: No
  Sender: FDA-Public Use
  Company Number: US-ASTRAZENECA-2020SF57922

PATIENT
  Age: 28063 Day
  Sex: Male
  Weight: 108.4 kg

DRUGS (9)
  1. BYETTA [Suspect]
     Active Substance: EXENATIDE
     Dosage: UNKNOWN DOSE AND FREQUENCY
     Route: 065
     Dates: start: 2005
  2. ATORVASTATIN CALCIUM. [Concomitant]
     Active Substance: ATORVASTATIN CALCIUM
  3. CARVEDILOL. [Concomitant]
     Active Substance: CARVEDILOL
  4. PANTOPRAZOLE [Concomitant]
     Active Substance: PANTOPRAZOLE
     Dosage: 40.0MG UNKNOWN
  5. METFORMIN [Concomitant]
     Active Substance: METFORMIN HYDROCHLORIDE
  6. INSULIN [Concomitant]
     Active Substance: INSULIN NOS
  7. BYDUREON [Suspect]
     Active Substance: EXENATIDE
     Indication: GLYCOSYLATED HAEMOGLOBIN INCREASED
     Route: 058
  8. TORSEMIDE. [Concomitant]
     Active Substance: TORSEMIDE
  9. LISINOPRIL. [Concomitant]
     Active Substance: LISINOPRIL
     Dosage: 10.0MG UNKNOWN
     Route: 048

REACTIONS (13)
  - Nervousness [Unknown]
  - Injection site haemorrhage [Recovered/Resolved]
  - Weight decreased [Unknown]
  - Diarrhoea [Unknown]
  - Product packaging quantity issue [Unknown]
  - Wrong technique in device usage process [Unknown]
  - Device malfunction [Unknown]
  - Limb injury [Unknown]
  - Pain [Unknown]
  - Injection site pain [Unknown]
  - Abdominal discomfort [Unknown]
  - Product dose omission issue [Unknown]
  - Device use issue [Unknown]

NARRATIVE: CASE EVENT DATE: 20201105
